FAERS Safety Report 8395778-9 (Version None)
Quarter: 2012Q2

REPORT INFORMATION
  Report Type: 
  Country: None (occurrence: None)
  Receive Date: 20120525
  Receipt Date: 20120525
  Transmission Date: 20120825
  Serious: No
  Sender: FDA-Public Use
  Company Number: None

PATIENT
  Sex: Male
  Weight: 33.5662 kg

DRUGS (2)
  1. CELEXA [Suspect]
     Indication: ANXIETY
     Dosage: 20MG QHS ORAL
     Route: 048
     Dates: start: 20120430
  2. CELEXA [Suspect]
     Indication: TRISOMY 21
     Dosage: 20MG QHS ORAL
     Route: 048
     Dates: start: 20120430

REACTIONS (4)
  - DEPRESSED MOOD [None]
  - CRYING [None]
  - PRODUCT SUBSTITUTION ISSUE [None]
  - DRUG EFFECT DECREASED [None]
